FAERS Safety Report 25123681 (Version 2)
Quarter: 2025Q3

REPORT INFORMATION
  Report Type: Spontaneous
  Country: US (occurrence: US)
  Receive Date: 20250326
  Receipt Date: 20250909
  Transmission Date: 20251021
  Serious: Yes (Hospitalization)
  Sender: MYLAN
  Company Number: US-MYLANLABS-2025M1025548

PATIENT
  Age: 55 Year
  Sex: Female

DRUGS (52)
  1. BUSPIRONE [Suspect]
     Active Substance: BUSPIRONE HYDROCHLORIDE
     Indication: Anxiety
     Dosage: 10 MILLIGRAM, TID
  2. BUSPIRONE [Suspect]
     Active Substance: BUSPIRONE HYDROCHLORIDE
     Dosage: 10 MILLIGRAM, TID
     Route: 065
  3. BUSPIRONE [Suspect]
     Active Substance: BUSPIRONE HYDROCHLORIDE
     Dosage: 10 MILLIGRAM, TID
     Route: 065
  4. BUSPIRONE [Suspect]
     Active Substance: BUSPIRONE HYDROCHLORIDE
     Dosage: 10 MILLIGRAM, TID
  5. METOPROLOL [Suspect]
     Active Substance: METOPROLOL
     Indication: Hypertension
  6. METOPROLOL [Suspect]
     Active Substance: METOPROLOL
     Indication: Hypertensive urgency
     Route: 065
  7. METOPROLOL [Suspect]
     Active Substance: METOPROLOL
     Indication: Secondary hypertension
     Route: 065
  8. METOPROLOL [Suspect]
     Active Substance: METOPROLOL
  9. CLONIDINE [Suspect]
     Active Substance: CLONIDINE
     Indication: Hypertension
     Dosage: 0.1 MILLIGRAM, BID
  10. CLONIDINE [Suspect]
     Active Substance: CLONIDINE
     Indication: Hypertensive urgency
     Dosage: 0.1 MILLIGRAM, BID
     Route: 065
  11. CLONIDINE [Suspect]
     Active Substance: CLONIDINE
     Indication: Secondary hypertension
     Dosage: 0.1 MILLIGRAM, BID
     Route: 065
  12. CLONIDINE [Suspect]
     Active Substance: CLONIDINE
     Dosage: 0.1 MILLIGRAM, BID
  13. LISINOPRIL [Suspect]
     Active Substance: LISINOPRIL
     Indication: Hypertension
     Dosage: 40 MILLIGRAM, QD
  14. LISINOPRIL [Suspect]
     Active Substance: LISINOPRIL
     Indication: Hypertensive urgency
     Dosage: 40 MILLIGRAM, QD
     Route: 065
  15. LISINOPRIL [Suspect]
     Active Substance: LISINOPRIL
     Indication: Secondary hypertension
     Dosage: 40 MILLIGRAM, QD
     Route: 065
  16. LISINOPRIL [Suspect]
     Active Substance: LISINOPRIL
     Dosage: 40 MILLIGRAM, QD
  17. CARVEDILOL [Suspect]
     Active Substance: CARVEDILOL
     Indication: Hypertensive urgency
     Dosage: 25 MILLIGRAM, BID
     Route: 065
  18. CARVEDILOL [Suspect]
     Active Substance: CARVEDILOL
     Indication: Secondary hypertension
     Dosage: 25 MILLIGRAM, BID
  19. CARVEDILOL [Suspect]
     Active Substance: CARVEDILOL
     Dosage: 25 MILLIGRAM, BID
  20. CARVEDILOL [Suspect]
     Active Substance: CARVEDILOL
     Dosage: 25 MILLIGRAM, BID
     Route: 065
  21. CARVEDILOL [Suspect]
     Active Substance: CARVEDILOL
     Route: 065
  22. CARVEDILOL [Suspect]
     Active Substance: CARVEDILOL
  23. CARVEDILOL [Suspect]
     Active Substance: CARVEDILOL
  24. CARVEDILOL [Suspect]
     Active Substance: CARVEDILOL
     Route: 065
  25. HYDRALAZINE [Suspect]
     Active Substance: HYDRALAZINE HYDROCHLORIDE
     Indication: Hypertensive urgency
  26. HYDRALAZINE [Suspect]
     Active Substance: HYDRALAZINE HYDROCHLORIDE
     Indication: Secondary hypertension
     Route: 042
  27. HYDRALAZINE [Suspect]
     Active Substance: HYDRALAZINE HYDROCHLORIDE
     Route: 042
  28. HYDRALAZINE [Suspect]
     Active Substance: HYDRALAZINE HYDROCHLORIDE
  29. ROSUVASTATIN [Concomitant]
     Active Substance: ROSUVASTATIN
     Indication: Hyperlipidaemia
  30. ROSUVASTATIN [Concomitant]
     Active Substance: ROSUVASTATIN
     Route: 065
  31. ROSUVASTATIN [Concomitant]
     Active Substance: ROSUVASTATIN
     Route: 065
  32. ROSUVASTATIN [Concomitant]
     Active Substance: ROSUVASTATIN
  33. ROPINIROLE [Concomitant]
     Active Substance: ROPINIROLE
     Indication: Product used for unknown indication
  34. ROPINIROLE [Concomitant]
     Active Substance: ROPINIROLE
     Route: 065
  35. ROPINIROLE [Concomitant]
     Active Substance: ROPINIROLE
     Route: 065
  36. ROPINIROLE [Concomitant]
     Active Substance: ROPINIROLE
  37. PROGESTERONE [Concomitant]
     Active Substance: PROGESTERONE
     Indication: Hormone therapy
  38. PROGESTERONE [Concomitant]
     Active Substance: PROGESTERONE
     Route: 065
  39. PROGESTERONE [Concomitant]
     Active Substance: PROGESTERONE
     Route: 065
  40. PROGESTERONE [Concomitant]
     Active Substance: PROGESTERONE
  41. APREMILAST [Concomitant]
     Active Substance: APREMILAST
     Indication: Product used for unknown indication
  42. APREMILAST [Concomitant]
     Active Substance: APREMILAST
     Route: 065
  43. APREMILAST [Concomitant]
     Active Substance: APREMILAST
     Route: 065
  44. APREMILAST [Concomitant]
     Active Substance: APREMILAST
  45. BUPROPION [Concomitant]
     Active Substance: BUPROPION
     Indication: Product used for unknown indication
  46. BUPROPION [Concomitant]
     Active Substance: BUPROPION
     Route: 065
  47. BUPROPION [Concomitant]
     Active Substance: BUPROPION
     Route: 065
  48. BUPROPION [Concomitant]
     Active Substance: BUPROPION
  49. RIZATRIPTAN [Concomitant]
     Active Substance: RIZATRIPTAN
     Indication: Product used for unknown indication
  50. RIZATRIPTAN [Concomitant]
     Active Substance: RIZATRIPTAN
     Route: 065
  51. RIZATRIPTAN [Concomitant]
     Active Substance: RIZATRIPTAN
     Route: 065
  52. RIZATRIPTAN [Concomitant]
     Active Substance: RIZATRIPTAN

REACTIONS (3)
  - Secondary hypertension [Recovering/Resolving]
  - Hypertensive urgency [Recovering/Resolving]
  - Drug ineffective [Unknown]
